FAERS Safety Report 4540766-3 (Version None)
Quarter: 2004Q4

REPORT INFORMATION
  Report Type: 
  Country: None (occurrence: None)
  Receive Date: 20041223
  Receipt Date: 20040924
  Transmission Date: 20050328
  Serious: No
  Sender: FDA-Public Use
  Company Number: US-JNJFOC-20040909636

PATIENT
  Age: 37 Year
  Sex: Female
  Weight: 55.7924 kg

DRUGS (4)
  1. ORTHO EVRA [Suspect]
     Dosage: 1 DOSE(S), 4 IN 4 WEEK, TRANSDERMAL
     Route: 062
     Dates: start: 20040101, end: 20040701
  2. SINGULAIR [Concomitant]
  3. ZYRTEC [Concomitant]
  4. ALLERGY SHOTS (ALLERGY MEDICATION) [Concomitant]

REACTIONS (2)
  - OLIGOMENORRHOEA [None]
  - UTERINE LEIOMYOMA [None]
